FAERS Safety Report 17136968 (Version 1)
Quarter: 2019Q4

REPORT INFORMATION
  Report Type: Spontaneous
  Country: US (occurrence: US)
  Receive Date: 20191210
  Receipt Date: 20191210
  Transmission Date: 20200122
  Serious: Yes (Hospitalization, Other)
  Sender: FDA-Public Use
  Company Number: US-NOVOPROD-700568

PATIENT
  Age: 71 Year
  Sex: Female

DRUGS (1)
  1. LEVEMIR [Suspect]
     Active Substance: INSULIN DETEMIR
     Indication: TYPE 2 DIABETES MELLITUS
     Dosage: 80 IU, QD(30 UNITS AM-50 UNITS/PM)
     Route: 058

REACTIONS (3)
  - Upper limb fracture [Unknown]
  - Fluid retention [Not Recovered/Not Resolved]
  - Fall [Unknown]
